FAERS Safety Report 4572673-4 (Version None)
Quarter: 2005Q1

REPORT INFORMATION
  Report Type: 
  Country: None (occurrence: None)
  Receive Date: 20050208
  Receipt Date: 20041117
  Transmission Date: 20050727
  Serious: No
  Sender: FDA-Public Use
  Company Number: US-GLAXOSMITHKLINE-A0534328A

PATIENT
  Age: 45 Year
  Sex: Female

DRUGS (2)
  1. PAXIL CR [Suspect]
  2. XANAX [Concomitant]

REACTIONS (3)
  - DIARRHOEA [None]
  - NAUSEA [None]
  - SOMNOLENCE [None]
